FAERS Safety Report 5703038-7 (Version None)
Quarter: 2008Q2

REPORT INFORMATION
  Report Type: 
  Country: None (occurrence: None)
  Receive Date: 20080411
  Receipt Date: 20080410
  Transmission Date: 20081010
  Serious: Yes (Hospitalization)
  Sender: FDA-Public Use
  Company Number: A0722021A

PATIENT
  Age: 62 Year
  Sex: Female

DRUGS (9)
  1. ALLI [Suspect]
     Indication: WEIGHT LOSS DIET
     Route: 048
     Dates: start: 20070101
  2. HYDROCODONE BITARTRATE [Concomitant]
  3. BUMEX [Concomitant]
  4. K-DUR [Concomitant]
  5. LEVOTHYROXINE SODIUM [Concomitant]
  6. LISINOPRIL [Concomitant]
  7. ZANTAC [Concomitant]
  8. DARVON [Concomitant]
  9. NEURONTIN [Concomitant]

REACTIONS (9)
  - ASTHENIA [None]
  - BLOOD IRON DECREASED [None]
  - CHANGE OF BOWEL HABIT [None]
  - DYSPNOEA [None]
  - FAECES DISCOLOURED [None]
  - FATIGUE [None]
  - GASTROINTESTINAL HAEMORRHAGE [None]
  - INTESTINAL HAEMORRHAGE [None]
  - LUNG INFECTION [None]
